FAERS Safety Report 7095431-8 (Version None)
Quarter: 2010Q4

REPORT INFORMATION
  Report Type: 
  Country: None (occurrence: None)
  Receive Date: 20101111
  Receipt Date: 20101105
  Transmission Date: 20110411
  Serious: Yes (Hospitalization)
  Sender: FDA-Public Use
  Company Number: US-BRISTOL-MYERS SQUIBB COMPANY-15330004

PATIENT
  Age: 73 Year
  Sex: Male

DRUGS (13)
  1. DASATINIB [Suspect]
     Indication: NON-SMALL CELL LUNG CANCER
     Dosage: PREVIOUSLY INTERRUPTED 07OCT10
     Route: 048
     Dates: start: 20100913, end: 20101007
  2. ERLOTINIB HYDROCHLORIDE [Suspect]
     Indication: NON-SMALL CELL LUNG CANCER
     Dosage: PREVIOUSLY INTERRUPTED 07OCT10
     Dates: start: 20100913, end: 20101007
  3. ACYCLOVIR SODIUM [Concomitant]
     Indication: HERPES OPHTHALMIC
     Route: 048
     Dates: start: 20000101
  4. VITAMIN B-12 [Concomitant]
     Route: 048
     Dates: start: 20100501
  5. FISH OIL [Concomitant]
     Route: 048
     Dates: start: 20100501
  6. FLUTICASONE PROPIONATE [Concomitant]
     Indication: HYPERSENSITIVITY
     Dosage: 1 DF=1 SPRAY
     Route: 045
     Dates: start: 20030101
  7. SIMVASTATIN [Concomitant]
     Indication: BLOOD CHOLESTEROL INCREASED
     Dosage: 1 TAB
     Dates: start: 20090101
  8. VITAMIN D [Concomitant]
     Dosage: 1 DF=1 TAB
     Dates: start: 20100501
  9. NORVASC [Concomitant]
     Indication: HYPERTENSION
     Route: 048
     Dates: start: 20100911
  10. ASPIRIN [Concomitant]
     Route: 048
     Dates: start: 20100201
  11. MINOCYCLINE HCL [Concomitant]
     Indication: RASH
     Route: 048
     Dates: start: 20100927
  12. MEDROL [Concomitant]
     Indication: PLEURAL EFFUSION
     Dosage: DOSE PACK
     Dates: start: 20100710
  13. LISINOPRIL [Concomitant]
     Dosage: 2000:10SEP10:10MG 11SEP10:20MG
     Route: 048
     Dates: start: 20000101

REACTIONS (4)
  - ACUTE RESPIRATORY FAILURE [None]
  - ATRIAL FIBRILLATION [None]
  - HYPERKALAEMIA [None]
  - RENAL FAILURE ACUTE [None]
